FAERS Safety Report 9392654 (Version 1)
Quarter: 2013Q3

REPORT INFORMATION
  Report Type: Spontaneous
  Country: US (occurrence: None)
  Receive Date: 20130708
  Receipt Date: 20130708
  Transmission Date: 20140515
  Serious: Yes (Hospitalization)
  Sender: FDA-Public Use
  Company Number: None

PATIENT
  Age: 25 Year
  Sex: Female
  Weight: 62 kg

DRUGS (3)
  1. SEROQUEL [Suspect]
     Indication: MOOD SWINGS
     Dosage: 300MG ONCE A DAY PO
     Route: 048
     Dates: start: 20120925, end: 20120930
  2. WELLBUTRIN [Concomitant]
  3. CITALOPRAM [Concomitant]

REACTIONS (1)
  - Dysarthria [None]
